FAERS Safety Report 21728698 (Version 1)
Quarter: 2022Q4

REPORT INFORMATION
  Report Type: Spontaneous
  Country: US (occurrence: None)
  Receive Date: 20221214
  Receipt Date: 20221214
  Transmission Date: 20230113
  Serious: No
  Sender: FDA-Public Use
  Company Number: 2022A406366

PATIENT
  Age: 71 Year
  Sex: Female

DRUGS (1)
  1. ZOMIG [Suspect]
     Active Substance: ZOLMITRIPTAN
     Route: 045

REACTIONS (8)
  - Migraine [Unknown]
  - Poor quality sleep [Unknown]
  - Hypophagia [Unknown]
  - Illness [Unknown]
  - Gait disturbance [Unknown]
  - Feeling abnormal [Unknown]
  - Memory impairment [Unknown]
  - Expired product administered [Unknown]

NARRATIVE: CASE EVENT DATE: 20221127
